FAERS Safety Report 6418338-5 (Version None)
Quarter: 2009Q4

REPORT INFORMATION
  Report Type: 
  Country: None (occurrence: None)
  Receive Date: 20091021
  Receipt Date: 20090619
  Transmission Date: 20100525
  Serious: No
  Sender: FDA-Public Use
  Company Number: ALL1-2009-01710

PATIENT
  Age: 77 Year
  Sex: Female
  Weight: 81.2 kg

DRUGS (8)
  1. VYVANSE [Suspect]
     Indication: NARCOLEPSY
     Dosage: 70 MG, 1X/DAY:QD, ORAL : 50 MG, 1X/DAY:QD, ORAL
     Route: 048
     Dates: start: 20090428, end: 20090615
  2. VYVANSE [Suspect]
     Indication: NARCOLEPSY
     Dosage: 70 MG, 1X/DAY:QD, ORAL : 50 MG, 1X/DAY:QD, ORAL
     Route: 048
     Dates: start: 20090616
  3. PREMARIN [Concomitant]
  4. AVALIDE [Concomitant]
  5. LOTREL [Concomitant]
  6. METFORMIN HCL [Concomitant]
  7. CYMBALTA [Concomitant]
  8. WELLBUTRIN [Concomitant]

REACTIONS (4)
  - ABNORMAL DREAMS [None]
  - FEELING ABNORMAL [None]
  - OFF LABEL USE [None]
  - RASH PRURITIC [None]
